FAERS Safety Report 16240170 (Version 1)
Quarter: 2019Q2

REPORT INFORMATION
  Report Type: Spontaneous
  Country: US (occurrence: US)
  Receive Date: 20190425
  Receipt Date: 20190425
  Transmission Date: 20190711
  Serious: No
  Sender: FDA-Public Use
  Company Number: US-ASTRAZENECA-2019SE51499

PATIENT
  Sex: Male

DRUGS (1)
  1. LUMOXITI [Suspect]
     Active Substance: MOXETUMOMAB PASUDOTOX-TDFK
     Indication: HAIRY CELL LEUKAEMIA
     Dosage: 0.04MG/KG UNKNOWN
     Route: 042
     Dates: start: 201901

REACTIONS (1)
  - Muscle injury [Recovering/Resolving]

NARRATIVE: CASE EVENT DATE: 201903
